FAERS Safety Report 7268481-6 (Version None)
Quarter: 2011Q1

REPORT INFORMATION
  Report Type: 
  Country: None (occurrence: None)
  Receive Date: 20110201
  Receipt Date: 20110121
  Transmission Date: 20110831
  Serious: Yes (Hospitalization)
  Sender: FDA-Public Use
  Company Number: US-BAYER-2011-007697

PATIENT
  Age: 56 Year
  Sex: Male

DRUGS (7)
  1. PLAVIX [Suspect]
     Indication: PROPHYLAXIS
     Dosage: 75 MG, QD
     Route: 048
     Dates: start: 20050101
  2. BETA BLOCKING AGENTS [Concomitant]
  3. ANTIHYPERTENSIVES [Concomitant]
  4. INSULIN [Concomitant]
  5. ASPIRIN [Suspect]
     Dosage: UNK
     Dates: start: 20050101
  6. METFORMIN HCL [Concomitant]
  7. ANALGESICS [Concomitant]

REACTIONS (2)
  - CHEST PAIN [None]
  - THROMBOTIC THROMBOCYTOPENIC PURPURA [None]
